FAERS Safety Report 11688056 (Version 1)
Quarter: 2015Q4

REPORT INFORMATION
  Report Type: Spontaneous
  Country: US (occurrence: US)
  Receive Date: 20151030
  Receipt Date: 20151030
  Transmission Date: 20160304
  Serious: Yes (Other)
  Sender: FDA-Public Use
  Company Number: US-ASTRAZENECA-2015SF03631

PATIENT
  Age: 970 Month
  Sex: Male
  Weight: 59 kg

DRUGS (7)
  1. SYMBICORT [Suspect]
     Active Substance: BUDESONIDE\FORMOTEROL FUMARATE DIHYDRATE
     Indication: CHRONIC OBSTRUCTIVE PULMONARY DISEASE
     Dosage: 160  MCG 2 PUFFS IN THE MORNING ONLY
     Route: 055
     Dates: start: 2014
  2. VALIUM [Concomitant]
     Active Substance: DIAZEPAM
  3. SENNA LAXATIVE [Concomitant]
     Active Substance: SENNOSIDES A AND B
     Indication: ABDOMINAL DISCOMFORT
     Dosage: 8.6. AS REQUIRED
     Route: 048
     Dates: start: 2015
  4. SYMBICORT [Suspect]
     Active Substance: BUDESONIDE\FORMOTEROL FUMARATE DIHYDRATE
     Indication: CHRONIC OBSTRUCTIVE PULMONARY DISEASE
     Dosage: EXTRA PUFFS AS REQUIRED
     Route: 055
  5. CRESTOR [Suspect]
     Active Substance: ROSUVASTATIN CALCIUM
     Indication: VEIN DISORDER
     Route: 048
  6. BENZAPRIL HCTZ [Concomitant]
     Indication: BLOOD PRESSURE ABNORMAL
     Dosage: 10, 12.5
     Route: 048
  7. PANTOPRAZOLE [Concomitant]
     Active Substance: PANTOPRAZOLE SODIUM
     Indication: GASTROOESOPHAGEAL REFLUX DISEASE
     Route: 048

REACTIONS (7)
  - Neuropathy peripheral [Unknown]
  - Back injury [Unknown]
  - Gastrointestinal disorder [Unknown]
  - Product use issue [Unknown]
  - Intentional product misuse [Unknown]
  - Dyspnoea [Unknown]
  - Chronic obstructive pulmonary disease [Unknown]

NARRATIVE: CASE EVENT DATE: 201508
